FAERS Safety Report 5031043-5 (Version None)
Quarter: 2006Q2

REPORT INFORMATION
  Report Type: 
  Country: None (occurrence: None)
  Receive Date: 20060615
  Receipt Date: 20060601
  Transmission Date: 20061013
  Serious: Yes (Hospitalization)
  Sender: FDA-Public Use
  Company Number: 2006RR-02516

PATIENT
  Age: 61 Year
  Sex: Female

DRUGS (4)
  1. RAMIPRIL [Suspect]
     Dosage: 7.5 MG
  2. PROCTO-KIT (HYDROCORTISONE) [Suspect]
  3. DEXCHLORPHENIRAMINE MALEATE [Suspect]
  4. EPINEPHRINE [Suspect]

REACTIONS (4)
  - DYSKINESIA [None]
  - RESTLESSNESS [None]
  - STRIDOR [None]
  - TONGUE OEDEMA [None]
